FAERS Safety Report 9760251 (Version 2)
Quarter: 2015Q3

REPORT INFORMATION
  Report Type: Spontaneous
  Country: US (occurrence: US)
  Receive Date: 20131216
  Receipt Date: 20150806
  Transmission Date: 20151125
  Serious: No
  Sender: FDA-Public Use
  Company Number: US-GILEAD-2010-0028974

PATIENT
  Age: 77 Year
  Sex: Female
  Weight: 79.38 kg

DRUGS (16)
  1. MIRAPEX [Concomitant]
     Active Substance: PRAMIPEXOLE DIHYDROCHLORIDE
  2. POTASSIUM CHLORIDE. [Concomitant]
     Active Substance: POTASSIUM CHLORIDE
  3. PROAIR HFA [Concomitant]
     Active Substance: ALBUTEROL SULFATE
  4. REVATIO [Concomitant]
     Active Substance: SILDENAFIL CITRATE
  5. METOLAZONE. [Concomitant]
     Active Substance: METOLAZONE
  6. LASIX [Concomitant]
     Active Substance: FUROSEMIDE
  7. FISH OIL [Concomitant]
     Active Substance: FISH OIL
  8. CALCIUM W/VITAMIN D [Concomitant]
     Active Substance: CALCIUM\VITAMIN D
  9. OXYGEN. [Concomitant]
     Active Substance: OXYGEN
  10. COLCHICINE. [Concomitant]
     Active Substance: COLCHICINE
  11. SOTALOL. [Concomitant]
     Active Substance: SOTALOL
  12. MULTIVITAMIN [Concomitant]
     Active Substance: VITAMINS
  13. VITAMIN B1 [Concomitant]
     Active Substance: THIAMINE HYDROCHLORIDE
  14. ASPIRIN. [Concomitant]
     Active Substance: ASPIRIN
  15. LETAIRIS [Suspect]
     Active Substance: AMBRISENTAN
     Indication: PULMONARY ARTERIAL HYPERTENSION
     Route: 048
     Dates: start: 20100409
  16. TESSALON [Concomitant]
     Active Substance: BENZONATATE

REACTIONS (1)
  - Swelling [Unknown]
